FAERS Safety Report 7212443-1 (Version None)
Quarter: 2011Q1

REPORT INFORMATION
  Report Type: 
  Country: None (occurrence: None)
  Receive Date: 20110106
  Receipt Date: 20101229
  Transmission Date: 20110831
  Serious: Yes (Hospitalization, Other)
  Sender: FDA-Public Use
  Company Number: CA-JNJFOC-20110100292

PATIENT
  Sex: Female
  Weight: 90 kg

DRUGS (8)
  1. REMICADE [Suspect]
     Indication: COLITIS ULCERATIVE
     Route: 042
  2. REMICADE [Suspect]
     Route: 042
  3. SOLU-CORTEF [Concomitant]
     Indication: PREMEDICATION
  4. PREDNISONE [Concomitant]
  5. BENADRYL [Concomitant]
     Indication: PREMEDICATION
     Route: 048
  6. REMICADE [Suspect]
     Route: 042
  7. REMICADE [Suspect]
     Route: 042
  8. VITAMIN TAB [Concomitant]

REACTIONS (6)
  - TACHYCARDIA [None]
  - PYREXIA [None]
  - DYSPNOEA [None]
  - INFUSION RELATED REACTION [None]
  - SWELLING FACE [None]
  - FLUSHING [None]
